FAERS Safety Report 9475563 (Version 1)
Quarter: 2013Q3

REPORT INFORMATION
  Report Type: Spontaneous
  Country: GB (occurrence: GB)
  Receive Date: 20130826
  Receipt Date: 20130826
  Transmission Date: 20140515
  Serious: Yes (Other)
  Sender: FDA-Public Use
  Company Number: GB-009507513-1308GBR008583

PATIENT
  Age: 52 Year
  Sex: Male

DRUGS (1)
  1. ONCOTICE [Suspect]
     Indication: BLADDER CANCER RECURRENT
     Dosage: 12.5 MG, QW
     Dates: start: 20130724, end: 20130724

REACTIONS (1)
  - Anaphylactic reaction [Recovered/Resolved]
